FAERS Safety Report 11746576 (Version 1)
Quarter: 2015Q4

REPORT INFORMATION
  Report Type: Spontaneous
  Country: GB (occurrence: GB)
  Receive Date: 20151117
  Receipt Date: 20151117
  Transmission Date: 20160304
  Serious: Yes (Death, Other)
  Sender: FDA-Public Use
  Company Number: GB-TEVA-607213ACC

PATIENT
  Age: 78 Year
  Sex: Male

DRUGS (2)
  1. ABIRATERONE [Suspect]
     Active Substance: ABIRATERONE
     Indication: PROSTATE CANCER METASTATIC
     Dosage: 1000 MILLIGRAM DAILY;
     Route: 048
     Dates: start: 20140701, end: 20150714
  2. PREDNISOLONE. [Suspect]
     Active Substance: PREDNISOLONE
     Indication: PROSTATE CANCER METASTATIC
     Dosage: 10 MILLIGRAM DAILY; DAILY DOSE: 10 MILLIGRAM, DOSAGE FORM: UNSPECIFIED
     Route: 065
     Dates: start: 20140701, end: 20150714

REACTIONS (4)
  - Asthenia [Unknown]
  - Haemorrhagic stroke [Fatal]
  - Fall [Unknown]
  - Facial paresis [Unknown]

NARRATIVE: CASE EVENT DATE: 20150719
